FAERS Safety Report 21668098 (Version 4)
Quarter: 2022Q4

REPORT INFORMATION
  Report Type: Spontaneous
  Country: CN (occurrence: CN)
  Receive Date: 20221201
  Receipt Date: 20221219
  Transmission Date: 20230113
  Serious: No
  Sender: FDA-Public Use
  Company Number: CN-AMGEN-CHNSP2022204013

PATIENT
  Age: 70 Year
  Sex: Male
  Weight: 82 kg

DRUGS (2)
  1. PROLIA [Suspect]
     Active Substance: DENOSUMAB
     Indication: Product used for unknown indication
     Dosage: 60 MILLIGRAM, Q6MO
     Route: 058
     Dates: start: 20221117
  2. AMLODIPINE BESYLATE [Concomitant]
     Active Substance: AMLODIPINE BESYLATE
     Indication: Hypertension
     Dosage: UNK
     Route: 065
     Dates: start: 202208

REACTIONS (5)
  - C-reactive protein increased [Unknown]
  - Generalised oedema [Recovering/Resolving]
  - Blood phosphorus decreased [Unknown]
  - Diarrhoea [Recovering/Resolving]
  - Localised oedema [Unknown]

NARRATIVE: CASE EVENT DATE: 20221117
